FAERS Safety Report 4893499-8 (Version None)
Quarter: 2006Q1

REPORT INFORMATION
  Report Type: 
  Country: None (occurrence: None)
  Receive Date: 20060125
  Receipt Date: 20060125
  Transmission Date: 20060701
  Serious: Yes (Hospitalization, Other)
  Sender: FDA-Public Use
  Company Number: None

PATIENT
  Sex: Male
  Weight: 72.6 kg

DRUGS (6)
  1. CYCLOPHOSPHAMIDE [Suspect]
     Indication: B-CELL LYMPHOMA
     Dosage: SEE IMAGE
     Dates: start: 20050608
  2. FLUDARABINE PHOSPHATE [Suspect]
     Dosage: SEE IMAGE
  3. G-CSF [Suspect]
     Dosage: SEE IMAGE
  4. METHOTREXATE [Suspect]
     Dosage: SEE IMAGE
  5. CELLCEPT [Concomitant]
  6. PREDNISONE [Concomitant]

REACTIONS (4)
  - CYTOMEGALOVIRUS VIRAEMIA [None]
  - MALAISE [None]
  - PRODUCTIVE COUGH [None]
  - PYREXIA [None]
